FAERS Safety Report 25804800 (Version 1)
Quarter: 2025Q3

REPORT INFORMATION
  Report Type: Spontaneous
  Country: US (occurrence: US)
  Receive Date: 20250915
  Receipt Date: 20250915
  Transmission Date: 20251021
  Serious: No
  Sender: ABBVIE
  Company Number: US-ABBVIE-6457669

PATIENT
  Age: 40 Year
  Sex: Male

DRUGS (2)
  1. UPADACITINIB [Suspect]
     Active Substance: UPADACITINIB
     Indication: Colitis ulcerative
     Dosage: FIRST ADMIN DATE: 2025
     Route: 048
  2. UPADACITINIB [Suspect]
     Active Substance: UPADACITINIB
     Indication: Colitis ulcerative
     Dosage: INDUCTION WITH 8 WEEKS, LAST ADMIN DATE: 2025
     Route: 048
     Dates: start: 202506

REACTIONS (1)
  - Semen discolouration [Recovered/Resolved]

NARRATIVE: CASE EVENT DATE: 20250801
